FAERS Safety Report 20069973 (Version 1)
Quarter: 2021Q4

REPORT INFORMATION
  Report Type: Spontaneous
  Country: CZ (occurrence: CZ)
  Receive Date: 20211115
  Receipt Date: 20211115
  Transmission Date: 20220303
  Serious: Yes (Hospitalization, Other)
  Sender: FDA-Public Use
  Company Number: CZ-NOVARTISPH-NVSC2021CZ250814

PATIENT
  Age: 74 Year
  Sex: Female

DRUGS (16)
  1. AFINITOR [Suspect]
     Active Substance: EVEROLIMUS
     Indication: Disease progression
     Dosage: 5 MG (EVERY OTHER DAY, LAST 14 DAYS 1X EVERY 32 DAYS   )
     Route: 065
     Dates: start: 202010, end: 202102
  2. AFINITOR [Suspect]
     Active Substance: EVEROLIMUS
     Dosage: 5 MG, QOD (EVERY OTHER DAY)
     Route: 065
     Dates: start: 202107
  3. LANREOTIDE ACETATE [Suspect]
     Active Substance: LANREOTIDE ACETATE
     Indication: Paraneoplastic nephrotic syndrome
     Dosage: 120 MG, Q4W
     Route: 058
     Dates: start: 202005
  4. OMEPRAZOLE [Concomitant]
     Active Substance: OMEPRAZOLE
     Indication: Product used for unknown indication
     Dosage: 20 MG, QD
     Route: 065
  5. VIGANTOL [Concomitant]
     Indication: Product used for unknown indication
     Dosage: 14 GTT, QD (14 GTT/ WEEK)
     Route: 065
  6. URSODIOL [Concomitant]
     Active Substance: URSODIOL
     Indication: Product used for unknown indication
     Dosage: 250 MG, BID  (0-0-2)
     Route: 065
  7. LERCANIDIPINE HYDROCHLORIDE [Concomitant]
     Active Substance: LERCANIDIPINE HYDROCHLORIDE
     Indication: Product used for unknown indication
     Dosage: 20 MG, QD
     Route: 065
  8. ATORVASTATIN [Concomitant]
     Active Substance: ATORVASTATIN
     Indication: Product used for unknown indication
     Dosage: 20 MG, QD
     Route: 065
  9. SPIRONOLACTONE [Concomitant]
     Active Substance: SPIRONOLACTONE
     Indication: Product used for unknown indication
     Dosage: 25 MG, QD
     Route: 065
  10. NADROPARIN CALCIUM [Concomitant]
     Active Substance: NADROPARIN CALCIUM
     Indication: Product used for unknown indication
     Dosage: 0,4 ML/24 HOD
     Route: 058
  11. BISOPROLOL FUMARATE [Concomitant]
     Active Substance: BISOPROLOL FUMARATE
     Indication: Product used for unknown indication
     Dosage: 5 MG, QD
     Route: 065
  12. VESICARE [Concomitant]
     Active Substance: SOLIFENACIN SUCCINATE
     Indication: Product used for unknown indication
     Dosage: UNK, QD (0-0-1)
     Route: 065
  13. CALCIUM CARBONATE [Concomitant]
     Active Substance: CALCIUM CARBONATE
     Indication: Product used for unknown indication
     Dosage: 500/400, QD (0-0-1)
     Route: 065
  14. FUROSEMIDE [Concomitant]
     Active Substance: FUROSEMIDE
     Indication: Product used for unknown indication
     Dosage: 40 MG, Q12H
     Route: 065
  15. INDAPAMIDE\PERINDOPRIL ARGININE [Concomitant]
     Active Substance: INDAPAMIDE\PERINDOPRIL ARGININE
     Indication: Oedema peripheral
     Dosage: 10/2.5MG TBL RECOMMENDATION TO RESTRICT LIQUIDS 1-1.5 PER 1/DAY
     Route: 065
     Dates: start: 201912
  16. PERINDOPRIL [Concomitant]
     Active Substance: PERINDOPRIL
     Indication: Product used for unknown indication
     Dosage: 10/2.5MG TBL RECOMMENDATION TO RESTRICT LIQUIDS 1-1.5 PER 1/DAY
     Route: 065

REACTIONS (8)
  - Depressed level of consciousness [Recovering/Resolving]
  - Disease progression [Unknown]
  - Tachypnoea [Recovering/Resolving]
  - Urinary tract infection [Unknown]
  - Pyrexia [Recovering/Resolving]
  - Anaemia [Recovered/Resolved]
  - Off label use [Unknown]
  - Pneumonia [Recovering/Resolving]

NARRATIVE: CASE EVENT DATE: 20200501
